FAERS Safety Report 20299347 (Version 1)
Quarter: 2022Q1

REPORT INFORMATION
  Report Type: Spontaneous
  Country: US (occurrence: US)
  Receive Date: 20220105
  Receipt Date: 20220105
  Transmission Date: 20220423
  Serious: No
  Sender: FDA-Public Use
  Company Number: US-AMGEN-USASP2022000674

PATIENT
  Age: 57 Year
  Sex: Female

DRUGS (5)
  1. OTEZLA [Suspect]
     Active Substance: APREMILAST
     Indication: Psoriasis
     Dosage: 10,20,30 MILLIGRAM, TAKE AS DIRECTED PER STARTER PACK PACKAGING DIRECTIONS
     Route: 048
     Dates: start: 20211214
  2. CYCLOBENZAPRINE HYDROCHLORIDE [Concomitant]
     Active Substance: CYCLOBENZAPRINE HYDROCHLORIDE
     Dosage: UNK
  3. LISINOPRIL [Concomitant]
     Active Substance: LISINOPRIL
     Dosage: 10 MILLIGRAM
  4. PIMECROLIMUS [Concomitant]
     Active Substance: PIMECROLIMUS
     Dosage: 1 PERCENT
  5. TRIAMCINOLONE [Concomitant]
     Active Substance: TRIAMCINOLONE
     Dosage: 0.025 PERCENT

REACTIONS (1)
  - Diarrhoea [Not Recovered/Not Resolved]
